FAERS Safety Report 10020122 (Version 6)
Quarter: 2015Q2

REPORT INFORMATION
  Report Type: Spontaneous
  Country: US (occurrence: US)
  Receive Date: 20140319
  Receipt Date: 20150430
  Transmission Date: 20150821
  Serious: Yes (Other)
  Sender: FDA-Public Use
  Company Number: US-AMGEN-USASP2014005797

PATIENT
  Age: 64 Year
  Sex: Male
  Weight: 84 kg

DRUGS (5)
  1. EPOGEN [Suspect]
     Active Substance: ERYTHROPOIETIN
     Indication: NEPHROGENIC ANAEMIA
     Dosage: 25000 UNIT, 3 TIMES/WK
     Route: 042
     Dates: start: 201011
  2. HECTOROL [Concomitant]
     Active Substance: DOXERCALCIFEROL
     Dosage: UNK
  3. VITAMIN D                          /00107901/ [Concomitant]
     Active Substance: ERGOCALCIFEROL
     Dosage: UNK
     Route: 048
  4. VENOFER [Concomitant]
     Active Substance: IRON SUCROSE
     Dosage: 50 MG, EVERY OTHER WEEK
     Route: 042
  5. RENVELA [Concomitant]
     Active Substance: SEVELAMER CARBONATE
     Dosage: UNK

REACTIONS (6)
  - Transferrin abnormal [Unknown]
  - Haemoglobin abnormal [Unknown]
  - Drug ineffective [Not Recovered/Not Resolved]
  - Non-neutralising antibodies positive [Unknown]
  - Anti-erythropoietin antibody positive [Unknown]
  - Serum ferritin abnormal [Unknown]

NARRATIVE: CASE EVENT DATE: 20130701
